FAERS Safety Report 4916043-5 (Version None)
Quarter: 2006Q1

REPORT INFORMATION
  Report Type: 
  Country: None (occurrence: None)
  Receive Date: 20060217
  Receipt Date: 20060209
  Transmission Date: 20060701
  Serious: Yes (Hospitalization)
  Sender: FDA-Public Use
  Company Number: US-ABBOTT-06P-163-0324629-00

PATIENT
  Age: 8 Year
  Sex: Male
  Weight: 27.24 kg

DRUGS (5)
  1. DEPAKOTE ER [Suspect]
     Indication: BIPOLAR DISORDER
     Route: 048
     Dates: start: 20060129, end: 20060130
  2. DEPAKOTE ER [Suspect]
     Route: 048
     Dates: end: 20060128
  3. DEPAKOTE ER [Suspect]
     Route: 048
     Dates: start: 20060201
  4. FOCALIN [Concomitant]
     Indication: DRUG USE FOR UNKNOWN INDICATION
  5. RISPERIDONE [Concomitant]
     Indication: DRUG USE FOR UNKNOWN INDICATION

REACTIONS (2)
  - CONVULSION [None]
  - DRUG LEVEL DECREASED [None]
